FAERS Safety Report 19288086 (Version 1)
Quarter: 2021Q2

REPORT INFORMATION
  Report Type: Spontaneous
  Country: US (occurrence: US)
  Receive Date: 20210521
  Receipt Date: 20210521
  Transmission Date: 20210717
  Serious: No
  Sender: FDA-Public Use
  Company Number: US-JACOBUS PHARMACEUTICAL COMPANY, INC.-2110810

PATIENT
  Age: 86 Year
  Sex: Female

DRUGS (14)
  1. LUMIGAN [Concomitant]
     Active Substance: BIMATOPROST
  2. MAXITROL [Concomitant]
     Active Substance: DEXAMETHASONE\NEOMYCIN SULFATE\POLYMYXIN B SULFATE
  3. TRIAZOLAM. [Concomitant]
     Active Substance: TRIAZOLAM
  4. ENTOCORT EC [Concomitant]
     Active Substance: BUDESONIDE
  5. PYRIDOSTIGMINE BROMIDE. [Concomitant]
     Active Substance: PYRIDOSTIGMINE BROMIDE
  6. COMBIGAN [Concomitant]
     Active Substance: BRIMONIDINE TARTRATE\TIMOLOL MALEATE
  7. CALCIUM CARBONATE. [Concomitant]
     Active Substance: CALCIUM CARBONATE
  8. VITAMIN D [Concomitant]
     Active Substance: VITAMIN D NOS
  9. OMEGA 3 [Concomitant]
     Active Substance: OMEGA-3 FATTY ACIDS
  10. SELENIUM (SELENIOUS ACID) [Concomitant]
     Active Substance: SELENIOUS ACID
  11. RUZURGI [Suspect]
     Active Substance: AMIFAMPRIDINE
     Route: 048
     Dates: start: 20210510
  12. MULTIVITAMIN [Concomitant]
     Active Substance: VITAMINS
  13. TEMAZEPAM. [Concomitant]
     Active Substance: TEMAZEPAM
  14. ASCORBIC ACID. [Concomitant]
     Active Substance: ASCORBIC ACID

REACTIONS (2)
  - Fatigue [Unknown]
  - Nausea [Unknown]

NARRATIVE: CASE EVENT DATE: 20210516
